FAERS Safety Report 4386865-0 (Version None)
Quarter: 2004Q2

REPORT INFORMATION
  Report Type: 
  Country: None (occurrence: None)
  Receive Date: 20040623
  Receipt Date: 20040603
  Transmission Date: 20050107
  Serious: Yes (Hospitalization, Other)
  Sender: FDA-Public Use
  Company Number: USA040669109

PATIENT
  Age: 84 Year
  Sex: Female

DRUGS (14)
  1. FORTEO [Suspect]
     Indication: OSTEOPOROSIS
     Dates: start: 20040501
  2. CARDIZEM CD [Concomitant]
  3. LASIX [Concomitant]
  4. KCL (POTASSIUM CHLORIDE) [Concomitant]
  5. ASPIRIN [Concomitant]
  6. PLAVIX [Concomitant]
  7. MIRALAX [Concomitant]
  8. VITAMIN B-12 [Concomitant]
  9. DITROPAN [Concomitant]
  10. CALCIUM [Concomitant]
  11. VITAMIN D [Concomitant]
  12. OXYCONTIN [Concomitant]
  13. HEPARIN [Concomitant]
  14. PEPCID [Concomitant]

REACTIONS (1)
  - MEDICATION ERROR [None]
